FAERS Safety Report 8863874 (Version 1)
Quarter: 2012Q4

REPORT INFORMATION
  Report Type: 
  Country: US (occurrence: US)
  Receive Date: 20121024
  Receipt Date: 20121024
  Transmission Date: 20130627
  Serious: No
  Sender: FDA-Public Use
  Company Number: US-AMGEN-USASP2011064285

PATIENT
  Age: 13 Year
  Sex: Male

DRUGS (2)
  1. ENBREL [Suspect]
     Indication: ANKYLOSING SPONDYLITIS
     Dosage: 50 mg, qwk
  2. ENBREL [Suspect]
     Dosage: 25 mg, 2 times/wk
     Dates: start: 20111001

REACTIONS (4)
  - Injection site pain [Recovered/Resolved]
  - Tonsillitis streptococcal [Recovered/Resolved]
  - Pruritus generalised [Not Recovered/Not Resolved]
  - Ankylosing spondylitis [Not Recovered/Not Resolved]
